FAERS Safety Report 7579709-7 (Version None)
Quarter: 2011Q2

REPORT INFORMATION
  Report Type: 
  Country: None (occurrence: None)
  Receive Date: 20110629
  Receipt Date: 20110621
  Transmission Date: 20111010
  Serious: Yes (Hospitalization, Other)
  Sender: FDA-Public Use
  Company Number: US-ASTELLAS-2011US003262

PATIENT

DRUGS (2)
  1. PROGRAF [Suspect]
     Dosage: 5 MG, UID/QD
     Route: 048
  2. PROGRAF [Suspect]
     Indication: IMMUNOSUPPRESSION
     Dosage: 5 MG, UID/QD
     Route: 048
     Dates: start: 20080701, end: 20100601

REACTIONS (3)
  - GASTROINTESTINAL TUBE INSERTION [None]
  - TREATMENT NONCOMPLIANCE [None]
  - HOSPITALISATION [None]
